FAERS Safety Report 20335648 (Version 7)
Quarter: 2023Q1

REPORT INFORMATION
  Report Type: Report from Study
  Country: JP (occurrence: JP)
  Receive Date: 20220114
  Receipt Date: 20230131
  Transmission Date: 20230418
  Serious: Yes (Death)
  Sender: FDA-Public Use
  Company Number: JP-NOVARTISPH-NVSC2022JP005125

PATIENT
  Age: 65 Year
  Sex: Male
  Weight: 54.8 kg

DRUGS (30)
  1. KYMRIAH [Suspect]
     Active Substance: TISAGENLECLEUCEL
     Indication: Diffuse large B-cell lymphoma
     Dosage: 0.2585E8
     Route: 042
     Dates: start: 20211115, end: 20211115
  2. METHYLPREDNISOLONE SODIUM SUCCINATE [Suspect]
     Active Substance: METHYLPREDNISOLONE SODIUM SUCCINATE
     Indication: Cytokine release syndrome
     Dosage: UNK
     Route: 065
     Dates: start: 20211222, end: 20211223
  3. METHYLPREDNISOLONE SODIUM SUCCINATE [Suspect]
     Active Substance: METHYLPREDNISOLONE SODIUM SUCCINATE
     Indication: Immune effector cell-associated neurotoxicity syndrome
  4. PIPERACILLIN [Concomitant]
     Active Substance: PIPERACILLIN
     Indication: Pneumonia
     Dosage: UNK
     Route: 065
     Dates: start: 20211220
  5. DEXAMETHASONE SODIUM PHOSPHATE [Concomitant]
     Active Substance: DEXAMETHASONE SODIUM PHOSPHATE
     Indication: Immune effector cell-associated neurotoxicity syndrome
     Dosage: 10 MG/BODY/6 HR
     Route: 065
     Dates: start: 202112
  6. DEXAMETHASONE SODIUM PHOSPHATE [Concomitant]
     Active Substance: DEXAMETHASONE SODIUM PHOSPHATE
     Indication: Cytokine release syndrome
  7. MIDAZOLAM [Concomitant]
     Active Substance: MIDAZOLAM
     Indication: Cytokine release syndrome
     Dosage: UNK
     Route: 065
     Dates: start: 20211222, end: 20220101
  8. LEVETIRACETAM [Concomitant]
     Active Substance: LEVETIRACETAM
     Indication: Seizure prophylaxis
     Dosage: UNK
     Route: 065
     Dates: start: 20211130
  9. ACYCLOVIR [Concomitant]
     Active Substance: ACYCLOVIR
     Indication: Infection prophylaxis
     Dosage: UNK
     Route: 065
     Dates: start: 20211203
  10. OMEPRAZOLE SODIUM [Concomitant]
     Active Substance: OMEPRAZOLE SODIUM
     Indication: Prophylaxis
     Dosage: UNK
     Route: 065
     Dates: start: 20211130
  11. HALOPERIDOL [Concomitant]
     Active Substance: HALOPERIDOL
     Indication: Agitation
     Dosage: UNK
     Route: 065
     Dates: start: 20211219, end: 20211228
  12. CALCIUM GLUCONATE [Concomitant]
     Active Substance: CALCIUM GLUCONATE
     Indication: Prophylaxis
     Dosage: UNK (HYDRATE)
     Route: 065
     Dates: start: 20211222, end: 20211224
  13. MAGNESIUM SULFATE [Concomitant]
     Active Substance: MAGNESIUM SULFATE
     Indication: Prophylaxis
     Dosage: UNK (HYDRATE)
     Route: 065
     Dates: start: 20211222, end: 20220105
  14. BISOPROLOL [Concomitant]
     Active Substance: BISOPROLOL
     Indication: Hypertension
     Dosage: UNK
     Route: 065
     Dates: start: 20211222
  15. PROPOFOL [Concomitant]
     Active Substance: PROPOFOL
     Indication: Cytokine release syndrome
     Dosage: UNK
     Route: 065
     Dates: start: 20211224, end: 20220107
  16. URSODIOL [Concomitant]
     Active Substance: URSODIOL
     Indication: Antiviral prophylaxis
     Dosage: UNK
     Route: 065
     Dates: start: 20211225
  17. NOREPINEPHRINE [Concomitant]
     Active Substance: NOREPINEPHRINE
     Indication: Neutropenia
     Dosage: UNK
     Route: 065
     Dates: start: 20211222, end: 20211223
  18. LANDIOLOL HYDROCHLORIDE [Concomitant]
     Active Substance: LANDIOLOL HYDROCHLORIDE
     Indication: Ventricular tachycardia
     Dosage: UNK
     Route: 065
     Dates: start: 20211228
  19. NALDEMEDINE TOSYLATE [Concomitant]
     Active Substance: NALDEMEDINE TOSYLATE
     Indication: Constipation
     Dosage: UNK
     Route: 065
     Dates: end: 20211222
  20. FEBUXOSTAT [Concomitant]
     Active Substance: FEBUXOSTAT
     Indication: Prophylaxis
     Dosage: UNK
     Route: 065
     Dates: end: 20211222
  21. CARVEDILOL [Concomitant]
     Active Substance: CARVEDILOL
     Indication: Hypertension
     Dosage: UNK
     Route: 065
     Dates: end: 20211222
  22. AMPHOTERICIN B [Concomitant]
     Active Substance: AMPHOTERICIN B
     Indication: Pneumonia
     Dosage: UNK
     Route: 065
     Dates: start: 20211222, end: 20211223
  23. AMPHOTERICIN B [Concomitant]
     Active Substance: AMPHOTERICIN B
     Dosage: UNK
     Route: 065
     Dates: start: 20211224, end: 20211226
  24. DEXMEDETOMIDINE HYDROCHLORIDE [Concomitant]
     Active Substance: DEXMEDETOMIDINE HYDROCHLORIDE
     Indication: Cytokine release syndrome
     Dosage: UNK
     Route: 065
     Dates: start: 20211223, end: 20211227
  25. FENTANYL [Concomitant]
     Active Substance: FENTANYL
     Indication: Pain
     Dosage: UNK
     Route: 065
     Dates: start: 20211103
  26. PENTAMIDINE ISETHIONATE [Concomitant]
     Active Substance: PENTAMIDINE ISETHIONATE
     Indication: Prophylaxis
     Dosage: UNK
     Route: 065
     Dates: start: 20211111
  27. FILGRASTIM RECOMBINANT [Concomitant]
     Indication: Neutropenia
     Dosage: UNK
     Route: 065
     Dates: start: 20211214
  28. TOCILIZUMAB [Concomitant]
     Active Substance: TOCILIZUMAB
     Indication: Cytokine release syndrome
     Dosage: 8 MG/KG
     Route: 065
     Dates: start: 20211122, end: 20211122
  29. TOCILIZUMAB [Concomitant]
     Active Substance: TOCILIZUMAB
     Dosage: 8 MG/KG
     Route: 065
     Dates: start: 20211221, end: 20211221
  30. TOCILIZUMAB [Concomitant]
     Active Substance: TOCILIZUMAB
     Dosage: UNK
     Route: 065
     Dates: start: 20220107

REACTIONS (2)
  - Diffuse large B-cell lymphoma [Fatal]
  - Malignant neoplasm progression [Fatal]

NARRATIVE: CASE EVENT DATE: 20220109
